FAERS Safety Report 8482770-9 (Version None)
Quarter: 2012Q3

REPORT INFORMATION
  Report Type: 
  Country: None (occurrence: None)
  Receive Date: 20120702
  Receipt Date: 20120626
  Transmission Date: 20120928
  Serious: No
  Sender: FDA-Public Use
  Company Number: US-B.I. PHARMACEUTICALS,INC./RIDGEFIELD-2012-BP-14541BP

PATIENT
  Sex: Female

DRUGS (5)
  1. AMBIEN [Concomitant]
     Indication: INSOMNIA
  2. BENADRYL [Concomitant]
     Indication: INSOMNIA
  3. PRADAXA [Suspect]
     Indication: ATRIAL FIBRILLATION
     Dosage: 300 MG
     Route: 048
     Dates: start: 20110601
  4. ACETAMINOPHEN [Concomitant]
     Indication: PAIN
  5. DILTIAZEM HYDROCHOLORIDE [Concomitant]
     Indication: HEART RATE IRREGULAR
     Dosage: 120 MG
     Route: 048
     Dates: start: 20110101

REACTIONS (3)
  - POLLAKIURIA [None]
  - MUSCLE SPASMS [None]
  - DYSPEPSIA [None]
